FAERS Safety Report 12931082 (Version 1)
Quarter: 2016Q4

REPORT INFORMATION
  Report Type: Spontaneous
  Country: TW (occurrence: TW)
  Receive Date: 20161110
  Receipt Date: 20161110
  Transmission Date: 20170207
  Serious: Yes (Death, Other)
  Sender: FDA-Public Use
  Company Number: TW-ELI_LILLY_AND_COMPANY-TW201611000691

PATIENT
  Age: 48 Year
  Sex: Female

DRUGS (3)
  1. PACLITAXEL. [Concomitant]
     Active Substance: PACLITAXEL
     Dosage: UNK, UNKNOWN
     Route: 065
     Dates: start: 20151029
  2. PACLITAXEL. [Concomitant]
     Active Substance: PACLITAXEL
     Indication: GASTRIC CANCER
     Dosage: 80 MG/KG, WEEKLY (1/W)
     Route: 065
     Dates: start: 20151013
  3. CYRAMZA [Suspect]
     Active Substance: RAMUCIRUMAB
     Indication: GASTRIC CANCER
     Dosage: UNK, UNKNOWN
     Route: 065
     Dates: start: 20151029

REACTIONS (8)
  - Hydronephrosis [Unknown]
  - Device failure [Unknown]
  - Urosepsis [Unknown]
  - Peripheral swelling [Unknown]
  - Pain in extremity [Unknown]
  - Erythema [Unknown]
  - Death [Fatal]
  - Malignant neoplasm progression [Unknown]

NARRATIVE: CASE EVENT DATE: 201601
